FAERS Safety Report 5447205-9 (Version None)
Quarter: 2007Q3

REPORT INFORMATION
  Report Type: 
  Country: None (occurrence: None)
  Receive Date: 20070910
  Receipt Date: 20070829
  Transmission Date: 20080115
  Serious: Yes (Hospitalization, Other)
  Sender: FDA-Public Use
  Company Number: PHHO2007CA09183

PATIENT
  Sex: Male
  Weight: 76 kg

DRUGS (7)
  1. ZOLEDRONATE VS RISEDRONATE [Suspect]
     Indication: OSTEITIS DEFORMANS
     Dosage: INTRAVENOUS + ORAL
     Dates: start: 20021022, end: 20021220
  2. VITAMIN B-12 [Concomitant]
  3. VITAMIN D [Concomitant]
  4. CALCIUM [Concomitant]
  5. NOVO-ATENOL [Concomitant]
  6. NOVO-METFORMIN [Concomitant]
  7. RIVASA [Concomitant]

REACTIONS (18)
  - ARTERIOSCLEROSIS [None]
  - ATRIAL FIBRILLATION [None]
  - BENIGN PROSTATIC HYPERPLASIA [None]
  - BRONCHOPNEUMONIA [None]
  - CHRONIC OBSTRUCTIVE PULMONARY DISEASE [None]
  - DELIRIUM [None]
  - DEMENTIA [None]
  - DUPUYTREN'S CONTRACTURE [None]
  - ENTEROVESICAL FISTULA [None]
  - HAEMATURIA [None]
  - LIVER DISORDER [None]
  - MELAENA [None]
  - MENINGIOMA [None]
  - RENAL FAILURE ACUTE [None]
  - RENAL FAILURE CHRONIC [None]
  - RHABDOMYOLYSIS [None]
  - SEPSIS [None]
  - URINARY TRACT INFECTION [None]
